FAERS Safety Report 8399203-3 (Version None)
Quarter: 2012Q2

REPORT INFORMATION
  Report Type: 
  Country: None (occurrence: None)
  Receive Date: 20120531
  Receipt Date: 20120524
  Transmission Date: 20120825
  Serious: Yes (Hospitalization)
  Sender: FDA-Public Use
  Company Number: US-GLAXOSMITHKLINE-A0933153A

PATIENT
  Age: 56 Year
  Sex: Female
  Weight: 88.6 kg

DRUGS (7)
  1. METOLAZONE [Concomitant]
  2. GLYBURIDE [Concomitant]
  3. FEXOFENADINE [Concomitant]
  4. LOVASTATIN [Concomitant]
  5. METFORMIN HCL [Concomitant]
  6. LAMICTAL [Concomitant]
  7. AVANDIA [Suspect]
     Indication: TYPE 2 DIABETES MELLITUS
     Dosage: 4MG PER DAY
     Route: 048
     Dates: start: 20040701, end: 20070717

REACTIONS (3)
  - MYOCARDIAL INFARCTION [None]
  - CARDIAC FAILURE CONGESTIVE [None]
  - DISTURBANCE IN ATTENTION [None]
